FAERS Safety Report 7012587-3 (Version None)
Quarter: 2010Q3

REPORT INFORMATION
  Report Type: 
  Country: None (occurrence: None)
  Receive Date: 20100914
  Receipt Date: 20100304
  Transmission Date: 20110219
  Serious: Yes (Other)
  Sender: FDA-Public Use
  Company Number: 2010027912

PATIENT
  Sex: Female

DRUGS (2)
  1. GLUCOTROL [Suspect]
  2. GLUCOPHAGE [Suspect]

REACTIONS (2)
  - BLOOD GLUCOSE DECREASED [None]
  - PRURITUS GENERALISED [None]
